FAERS Safety Report 15892866 (Version 1)
Quarter: 2019Q1

REPORT INFORMATION
  Report Type: Spontaneous
  Country: CA (occurrence: CA)
  Receive Date: 20190130
  Receipt Date: 20190130
  Transmission Date: 20190417
  Serious: No
  Sender: FDA-Public Use
  Company Number: CA-EXELIXIS-CABO-18016705

PATIENT
  Age: 67 Year
  Sex: Male

DRUGS (2)
  1. CABOMETYX [Suspect]
     Active Substance: CABOZANTINIB S-MALATE
     Indication: METASTATIC RENAL CELL CARCINOMA
     Dosage: 60 MG, QD
     Route: 048
     Dates: start: 20180524, end: 2018
  2. CABOMETYX [Suspect]
     Active Substance: CABOZANTINIB S-MALATE
     Dosage: 40 MG, QD
     Route: 048
     Dates: start: 2018

REACTIONS (16)
  - Chest pain [Recovering/Resolving]
  - Stomatitis [Recovered/Resolved]
  - Dysphagia [Recovering/Resolving]
  - Inappropriate schedule of product administration [Unknown]
  - Palmar-plantar erythrodysaesthesia syndrome [Not Recovered/Not Resolved]
  - Photosensitivity reaction [Unknown]
  - Somnolence [Unknown]
  - Anal inflammation [Recovered/Resolved]
  - Hypothyroidism [Unknown]
  - Fatigue [Unknown]
  - Blood creatinine increased [Recovering/Resolving]
  - Alanine aminotransferase increased [Unknown]
  - Gout [Recovering/Resolving]
  - Malaise [Unknown]
  - Aspartate aminotransferase increased [Unknown]
  - Dysphonia [Unknown]

NARRATIVE: CASE EVENT DATE: 2018
